FAERS Safety Report 10213801 (Version 3)
Quarter: 2014Q2

REPORT INFORMATION
  Report Type: Spontaneous
  Country: IT (occurrence: IT)
  Receive Date: 20140603
  Receipt Date: 20140612
  Transmission Date: 20141212
  Serious: Yes (Life-Threatening)
  Sender: FDA-Public Use
  Company Number: IT-009507513-1404ITA007407

PATIENT
  Age: 53 Year
  Sex: Male

DRUGS (8)
  1. ERTAPENEM SODIUM [Suspect]
     Indication: KLEBSIELLA INFECTION
     Dosage: 1 G DAILY
     Route: 042
     Dates: start: 20140310, end: 20140402
  2. PIPERACILLIN SODIUM (+) TAZOBACTAM SODIUM [Suspect]
     Indication: KLEBSIELLA INFECTION
     Dosage: UNK
     Route: 042
     Dates: start: 20140306, end: 20140320
  3. TYGACIL [Concomitant]
     Indication: KLEBSIELLA INFECTION
     Dosage: 100 MG, INTRAVENOUS
     Route: 042
     Dates: start: 20140114, end: 20140402
  4. MERREM [Concomitant]
     Indication: KLEBSIELLA INFECTION
     Dosage: 2 G, INTRAVENOUS
     Route: 042
     Dates: start: 20140114, end: 20140402
  5. CELLCEPT [Concomitant]
     Indication: LIVER TRANSPLANT
     Dosage: 250 MG
     Dates: start: 20140326, end: 20140328
  6. URBASON [Concomitant]
     Dosage: 4 MG, UNK
  7. COLISTIN [Concomitant]
     Indication: KLEBSIELLA INFECTION
     Dosage: UNK
     Dates: start: 20140114
  8. NEORAL SANDIMMUN [Concomitant]
     Indication: IMMUNOSUPPRESSION
     Dosage: 30 MG, UNK

REACTIONS (2)
  - Leukopenia [Recovering/Resolving]
  - Thrombocytopenia [Recovering/Resolving]
